FAERS Safety Report 10730491 (Version 4)
Quarter: 2015Q1

REPORT INFORMATION
  Report Type: Report from Study
  Country: FR (occurrence: FR)
  Receive Date: 20150122
  Receipt Date: 20150302
  Transmission Date: 20150721
  Serious: Yes (Death, Life-Threatening)
  Sender: FDA-Public Use
  Company Number: FR-AMGEN-FRACT2015005167

PATIENT
  Age: 18 Year
  Sex: Female
  Weight: 48 kg

DRUGS (38)
  1. CATAPRESSAN                        /00171101/ [Concomitant]
     Active Substance: CLONIDINE
     Indication: HYPERTENSIVE CRISIS
     Dosage: 150 MUG, TID
     Dates: start: 201412
  2. CORTANCYL [Concomitant]
     Active Substance: PREDNISONE
     Dosage: 0.7 MG/KG, QD
     Route: 048
     Dates: start: 20140718
  3. VERSATIS [Concomitant]
     Active Substance: LIDOCAINE
     Dosage: 1 PATCH/DAY
  4. VANCOMYCIN [Concomitant]
     Active Substance: VANCOMYCIN
     Dosage: 100 MG, TID
  5. AMBISOME [Concomitant]
     Active Substance: AMPHOTERICIN B
     Dosage: 40 MG, QD
  6. SURGESTONE [Concomitant]
     Active Substance: PROMEGESTONE
     Dosage: 1 CAPSULE, QD
  7. LOXEN                              /00639802/ [Concomitant]
     Active Substance: NICARDIPINE
     Indication: HYPERTENSION
     Dosage: 2.5 UG/KG/MIN, UNK
     Dates: start: 201404
  8. LOXEN                              /00639802/ [Concomitant]
     Active Substance: NICARDIPINE
     Indication: HYPERTENSIVE CRISIS
  9. TRANDATE [Concomitant]
     Active Substance: LABETALOL HYDROCHLORIDE
     Indication: HYPERTENSIVE CRISIS
  10. RIVOTRIL [Concomitant]
     Active Substance: CLONAZEPAM
     Dosage: UNK
     Dates: end: 20150105
  11. CIRCADIN [Concomitant]
     Active Substance: MELATONIN
     Dosage: 2 MG, QD
  12. PRIVIGEN [Concomitant]
     Active Substance: HUMAN IMMUNOGLOBULIN G
     Dosage: 10 G, QWK
  13. BAYPRESS [Concomitant]
     Active Substance: NITRENDIPINE
     Indication: HYPERTENSION
     Dosage: 40 MG, QD
     Dates: start: 201404
  14. NUBAIN [Concomitant]
     Active Substance: NALBUPHINE HYDROCHLORIDE
     Dosage: 10 MG, 4-6 QD
  15. FOSCARNET [Concomitant]
     Active Substance: FOSCARNET
     Dosage: UNK
     Route: 048
     Dates: start: 20141120
  16. INSULIN [Concomitant]
     Active Substance: INSULIN NOS
     Indication: HYPERGLYCAEMIA
  17. ACUPAN [Concomitant]
     Active Substance: NEFOPAM HYDROCHLORIDE
     Dosage: 1 MG/KG, QD
  18. PERFALGAN [Concomitant]
     Active Substance: ACETAMINOPHEN
     Dosage: 400 MG, Q4H
  19. VITAMIN K [Concomitant]
     Active Substance: PHYTONADIONE
     Dosage: 10 MG, 3 TIMES/WK
  20. LAROXYL [Concomitant]
     Active Substance: AMITRIPTYLINE
     Dosage: 1/2 CAPSULE, BID
  21. APC                                /00005201/ [Concomitant]
     Dosage: UNK UNK, QD
  22. SIROLIMUS. [Concomitant]
     Active Substance: SIROLIMUS
  23. NEORAL [Concomitant]
     Active Substance: CYCLOSPORINE
     Dosage: UNK
     Route: 048
  24. LONOTEN [Concomitant]
     Active Substance: MINOXIDIL
     Indication: HYPERTENSIVE CRISIS
     Dosage: 5 MG, BID
     Dates: start: 201412
  25. TRANDATE [Concomitant]
     Active Substance: LABETALOL HYDROCHLORIDE
     Indication: HYPERTENSION
     Dosage: 200 MG, BID
  26. FORTUM                             /00559701/ [Concomitant]
     Active Substance: CEFTAZIDIME
     Dosage: 1 G, QD
  27. ROVALCYTE [Concomitant]
     Active Substance: VALGANCICLOVIR HYDROCHLORIDE
     Dosage: UNK
     Dates: end: 20150105
  28. ATARAX [Concomitant]
     Active Substance: HYDROXYZINE\HYDROXYZINE HYDROCHLORIDE
     Dosage: 25 MG, BID
  29. NPLATE [Concomitant]
     Active Substance: ROMIPLOSTIM
     Indication: THROMBOCYTOPENIA
  30. NEUPOGEN [Concomitant]
     Active Substance: FILGRASTIM
     Dosage: 200 MUG, QD
  31. PECFENT [Concomitant]
     Active Substance: FENTANYL CITRATE
     Dosage: 6 MUG, Q6H
     Route: 045
  32. PEGFILGRASTIM [Suspect]
     Active Substance: PEGFILGRASTIM
     Indication: PRODUCT USED FOR UNKNOWN INDICATION
     Dosage: 200 MUG, UNK
     Route: 048
  33. RAPAMUNE [Concomitant]
     Active Substance: SIROLIMUS
     Dosage: 1.5 MG, UNK
     Route: 048
  34. PCE [Concomitant]
     Active Substance: ERYTHROMYCIN ETHYLSUCCINATE
     Dosage: UNK
     Route: 048
  35. KEPPRA [Concomitant]
     Active Substance: LEVETIRACETAM
     Dosage: 500 MG, BID
  36. PENTACARINAT [Concomitant]
     Active Substance: PENTAMIDINE ISETHIONATE
     Dosage: UNK UNK, QMO
  37. RANIPLEX                           /00550801/ [Concomitant]
     Dosage: 20 MG, BID
  38. SOLUPRED                           /00016201/ [Concomitant]
     Active Substance: PREDNISOLONE
     Dosage: UNK
     Route: 048
     Dates: start: 20140718

REACTIONS (4)
  - Respiratory distress [Fatal]
  - Aplasia [Fatal]
  - Graft versus host disease [Fatal]
  - Viral infection [Fatal]

NARRATIVE: CASE EVENT DATE: 20150109
